FAERS Safety Report 14635433 (Version 1)
Quarter: 2018Q1

REPORT INFORMATION
  Report Type: Spontaneous
  Country: US (occurrence: US)
  Receive Date: 20180314
  Receipt Date: 20180314
  Transmission Date: 20180509
  Serious: Yes (Other)
  Sender: FDA-Public Use
  Company Number: US-TEVA-2018-US-869807

PATIENT
  Age: 65 Year
  Sex: Female

DRUGS (2)
  1. VENLAFAXINE [Suspect]
     Active Substance: VENLAFAXINE HYDROCHLORIDE
     Indication: ANXIETY
     Route: 065
     Dates: start: 20180207
  2. TRAMADOL. [Concomitant]
     Active Substance: TRAMADOL
     Route: 065

REACTIONS (9)
  - Nausea [Unknown]
  - Paraesthesia [Unknown]
  - Headache [Unknown]
  - Pain in extremity [Unknown]
  - Dizziness [Unknown]
  - Serotonin syndrome [Unknown]
  - Rectal spasm [Unknown]
  - Bladder spasm [Unknown]
  - Balance disorder [Unknown]

NARRATIVE: CASE EVENT DATE: 20180208
